FAERS Safety Report 15077085 (Version 1)
Quarter: 2018Q2

REPORT INFORMATION
  Report Type: Spontaneous
  Country: TR (occurrence: TR)
  Receive Date: 20180627
  Receipt Date: 20180627
  Transmission Date: 20180711
  Serious: Yes (Death, Other)
  Sender: FDA-Public Use
  Company Number: TR-SA-2018SA157138

PATIENT
  Sex: Female

DRUGS (4)
  1. IMURAN [AZATHIOPRINE] [Concomitant]
     Dosage: 50 MG
  2. DELTACORTRIL [PREDNISOLONE] [Concomitant]
  3. FABRAZYME [Suspect]
     Active Substance: AGALSIDASE BETA
     Indication: FABRY^S DISEASE
     Dosage: 4 DF, QOW
     Route: 041
     Dates: start: 2014
  4. CELLCEPT [MYCOPHENOLATE MOFETIL HYDROCHLORIDE] [Concomitant]

REACTIONS (1)
  - Systemic lupus erythematosus [Fatal]
